FAERS Safety Report 10347416 (Version 3)
Quarter: 2014Q3

REPORT INFORMATION
  Report Type: Spontaneous
  Country: AU (occurrence: AU)
  Receive Date: 20140729
  Receipt Date: 20140908
  Transmission Date: 20150326
  Serious: Yes (Other)
  Sender: FDA-Public Use
  Company Number: AU-AMGEN-AUSSP2014053253

PATIENT
  Age: 79 Year
  Sex: Female

DRUGS (3)
  1. WARFARIN [Concomitant]
     Active Substance: WARFARIN
     Dosage: UNK
     Dates: start: 201210, end: 20140901
  2. COVERSYL                           /00790702/ [Concomitant]
     Active Substance: PERINDOPRIL
     Dosage: 5 MG, QD
  3. PROLIA [Suspect]
     Active Substance: DENOSUMAB
     Indication: OSTEOPOROSIS POSTMENOPAUSAL
     Dosage: 60 MG, Q6MO
     Route: 065
     Dates: start: 20140707

REACTIONS (1)
  - Liver function test abnormal [Recovering/Resolving]

NARRATIVE: CASE EVENT DATE: 20140710
